FAERS Safety Report 5808637-X (Version None)
Quarter: 2008Q3

REPORT INFORMATION
  Report Type: 
  Country: None (occurrence: None)
  Receive Date: 20080709
  Receipt Date: 20080709
  Transmission Date: 20090109
  Serious: Yes (Disabling)
  Sender: FDA-Public Use
  Company Number: None

PATIENT
  Age: 15 Year
  Sex: Female

DRUGS (2)
  1. SENSORCAINE [Suspect]
     Indication: ARTHROSCOPY
     Dosage: .5/ .25% SENSORCAINE 270 ML, 5 ML/ HR 014
     Dates: start: 20040802
  2. I-FLOW ON-PAINBUSTER PAIN PUMP [Concomitant]

REACTIONS (2)
  - CHONDROLYSIS [None]
  - CHONDROPATHY [None]
